FAERS Safety Report 22692327 (Version 3)
Quarter: 2023Q4

REPORT INFORMATION
  Report Type: Spontaneous
  Country: US (occurrence: US)
  Receive Date: 20230711
  Receipt Date: 20231006
  Transmission Date: 20240110
  Serious: Yes (Life-Threatening, Hospitalization, Other)
  Sender: FDA-Public Use
  Company Number: US-MLMSERVICE-20230703-4392397-1

PATIENT
  Age: 48 Year
  Sex: Female

DRUGS (1)
  1. METHYLPREDNISOLONE SODIUM SUCCINATE [Suspect]
     Active Substance: METHYLPREDNISOLONE SODIUM SUCCINATE
     Indication: Immunosuppressant drug therapy
     Route: 042

REACTIONS (6)
  - Septic embolus [Unknown]
  - Thrombophlebitis septic [Unknown]
  - Pneumonia [Recovering/Resolving]
  - Pulmonary cavitation [Recovering/Resolving]
  - Enterococcal bacteraemia [Recovering/Resolving]
  - Jugular vein thrombosis [Unknown]
